FAERS Safety Report 5982143-4 (Version None)
Quarter: 2008Q4

REPORT INFORMATION
  Report Type: 
  Country: None (occurrence: None)
  Receive Date: 20081203
  Receipt Date: 20081118
  Transmission Date: 20090506
  Serious: Yes (Death, Hospitalization, Other)
  Sender: FDA-Public Use
  Company Number: 2008US001988

PATIENT
  Age: 59 Year
  Sex: Male

DRUGS (7)
  1. TACROLIMUS CAPSULE [Suspect]
     Indication: RENAL TRANSPLANT
     Dosage: 2 MG, BID, ORAL
     Route: 048
     Dates: start: 20031225, end: 20080908
  2. BACTRIM DS       (SULFAMETHOXAZOLE, TRIMETHOPRIM) FOMULATION [Concomitant]
  3. CELLCEPT (MYCOPHENOLATE MOFETIL) FORMULATION [Concomitant]
  4. K- PHOS NEUTRAL (SODIUM PHOSPHATE DIBASIC, SODIUM PHOSPHATE MONOBASIC [Concomitant]
  5. NIFEDIPINE FORMULATION [Concomitant]
  6. PREDNISONE (PREDNISONE ACETATE) FORMULATION [Concomitant]
  7. TENORMIN (ATENOLOL) FORMULATION [Concomitant]

REACTIONS (14)
  - ACUTE RESPIRATORY DISTRESS SYNDROME [None]
  - ASCITES [None]
  - CONFUSIONAL STATE [None]
  - DYSPHAGIA [None]
  - HEPARIN-INDUCED THROMBOCYTOPENIA [None]
  - ILEUS [None]
  - INFUSION SITE REACTION [None]
  - PNEUMONIA [None]
  - PULMONARY EMBOLISM [None]
  - SEPSIS [None]
  - SHOCK [None]
  - SQUAMOUS CELL CARCINOMA [None]
  - THROMBOCYTOPENIA [None]
  - WOUND SECRETION [None]
